FAERS Safety Report 8475156-4 (Version None)
Quarter: 2012Q2

REPORT INFORMATION
  Report Type: 
  Country: None (occurrence: None)
  Receive Date: 20120628
  Receipt Date: 20120620
  Transmission Date: 20120825
  Serious: Yes (Hospitalization, Congenital Anomaly, Other)
  Sender: FDA-Public Use
  Company Number: US-PFIZER INC-2011227136

PATIENT
  Sex: Male
  Weight: 2.54 kg

DRUGS (5)
  1. ZOLOFT [Suspect]
     Dosage: 50MG ONE TABLET DAILY
     Route: 064
     Dates: start: 20010716
  2. ZOLOFT [Suspect]
     Dosage: 100MG TWO TABLETS DAILY
     Route: 064
     Dates: start: 20050510
  3. MULTI-VITAMINS [Concomitant]
     Dosage: UNK
     Route: 064
     Dates: start: 20070127
  4. ZOLOFT [Suspect]
     Dosage: 100MG ONE TABLET DAILY
     Route: 064
     Dates: start: 20011017
  5. LOVENOX [Concomitant]
     Dosage: 40 MG, PER DAY
     Route: 064
     Dates: start: 20070127

REACTIONS (15)
  - DIASTOLIC DYSFUNCTION [None]
  - MATERNAL EXPOSURE TIMING UNSPECIFIED [None]
  - VENTRICULAR SEPTAL DEFECT [None]
  - RIGHT VENTRICULAR HYPERTROPHY [None]
  - ATRIOVENTRICULAR BLOCK COMPLETE [None]
  - FAILURE TO THRIVE [None]
  - CARDIOMEGALY [None]
  - PULMONARY VALVE INCOMPETENCE [None]
  - CYANOSIS [None]
  - PULMONARY OEDEMA [None]
  - PULMONARY ARTERY DILATATION [None]
  - CARDIAC FAILURE CONGESTIVE [None]
  - DILATATION VENTRICULAR [None]
  - PULMONARY HYPERTENSION [None]
  - ATRIAL SEPTAL DEFECT [None]
